FAERS Safety Report 6257745-0 (Version None)
Quarter: 2009Q3

REPORT INFORMATION
  Report Type: 
  Country: None (occurrence: None)
  Receive Date: 20090706
  Receipt Date: 20090626
  Transmission Date: 20100115
  Serious: Yes (Death, Other)
  Sender: FDA-Public Use
  Company Number: US-PURDUE-USA-2009-0038801

PATIENT
  Sex: Male

DRUGS (5)
  1. OXYCONTIN [Suspect]
     Indication: DRUG USE FOR UNKNOWN INDICATION
  2. DEMEROL [Suspect]
     Indication: DRUG USE FOR UNKNOWN INDICATION
  3. MORPHINE SULFATE (SIMILAR TO NDA 19-516) [Concomitant]
     Dosage: UNK
  4. XANAX [Concomitant]
     Dosage: UNK
  5. VALIUM [Concomitant]
     Dosage: UNK

REACTIONS (3)
  - CARDIAC ARREST [None]
  - DEATH [None]
  - DRUG DEPENDENCE [None]
